FAERS Safety Report 18675603 (Version 1)
Quarter: 2020Q4

REPORT INFORMATION
  Report Type: Spontaneous
  Country: FR (occurrence: FR)
  Receive Date: 20201229
  Receipt Date: 20201229
  Transmission Date: 20210114
  Serious: Yes (Hospitalization)
  Sender: FDA-Public Use
  Company Number: FR-TEVA-2020-FR-1862256

PATIENT
  Age: 68 Year
  Sex: Female

DRUGS (12)
  1. TERALITHE [Interacting]
     Active Substance: LITHIUM CARBONATE
     Indication: BIPOLAR DISORDER
     Dosage: UNIT DOSE : 400 MG
     Route: 048
     Dates: end: 20201128
  2. METFORMINE [Concomitant]
     Active Substance: METFORMIN HYDROCHLORIDE
  3. KAYEXALATE [Concomitant]
     Active Substance: SODIUM POLYSTYRENE SULFONATE
  4. HUMALOG [Concomitant]
     Active Substance: INSULIN LISPRO
  5. OLANZAPINE. [Concomitant]
     Active Substance: OLANZAPINE
  6. LACTULOSE. [Concomitant]
     Active Substance: LACTULOSE
  7. RISPERIDONE. [Concomitant]
     Active Substance: RISPERIDONE
  8. LERCANIDIPINE (CHLORHYDRATE DE) [Concomitant]
     Active Substance: LERCANIDIPINE HYDROCHLORIDE
  9. CLOZAPINE. [Concomitant]
     Active Substance: CLOZAPINE
  10. NEBIVOLOL. [Suspect]
     Active Substance: NEBIVOLOL
     Indication: HYPERTENSION
     Dosage: UNIT DOSE : 5 MG
     Route: 048
     Dates: end: 20201128
  11. LOSARTAN POTASSIQUE [Concomitant]
     Active Substance: LOSARTAN POTASSIUM
  12. PARKINANE [Concomitant]
     Active Substance: TRIHEXYPHENIDYL HYDROCHLORIDE

REACTIONS (2)
  - Sinoatrial block [Recovering/Resolving]
  - Drug interaction [Unknown]

NARRATIVE: CASE EVENT DATE: 202011
